FAERS Safety Report 17635537 (Version 1)
Quarter: 2020Q2

REPORT INFORMATION
  Report Type: Spontaneous
  Country: IE (occurrence: IE)
  Receive Date: 20200406
  Receipt Date: 20200406
  Transmission Date: 20200713
  Serious: Yes (Death, Other)
  Sender: FDA-Public Use
  Company Number: IE-INCYTE CORPORATION-2020IN003117

PATIENT

DRUGS (1)
  1. JAKAVI [Suspect]
     Active Substance: RUXOLITINIB
     Indication: MYELOPROLIFERATIVE NEOPLASM
     Dosage: UNK
     Route: 065

REACTIONS (3)
  - Leukocytosis [Fatal]
  - Neutrophilia [Unknown]
  - Multiple organ dysfunction syndrome [Fatal]
